FAERS Safety Report 19157545 (Version 1)
Quarter: 2021Q2

REPORT INFORMATION
  Report Type: Spontaneous
  Country: BR (occurrence: BR)
  Receive Date: 20210420
  Receipt Date: 20210420
  Transmission Date: 20210717
  Serious: Yes (Hospitalization, Other)
  Sender: FDA-Public Use
  Company Number: BR-SUN PHARMACEUTICAL INDUSTRIES LTD-2021R1-292157

PATIENT
  Age: 70 Year
  Sex: Female

DRUGS (8)
  1. DOXORUBICIN [Suspect]
     Active Substance: DOXORUBICIN
     Dosage: THIRD CYCLES
     Route: 065
     Dates: start: 201709
  2. VINCRISTINE [Suspect]
     Active Substance: VINCRISTINE
     Indication: B-CELL LYMPHOMA
     Dosage: TWO CYCLES
     Route: 065
     Dates: start: 201706
  3. RITUXIMAB. [Suspect]
     Active Substance: RITUXIMAB
     Dosage: THIRD CYCLES
     Route: 065
     Dates: start: 201709
  4. CYCLOPHOSPHAMIDE. [Suspect]
     Active Substance: CYCLOPHOSPHAMIDE
     Dosage: THIRD CYCLES
     Route: 065
     Dates: start: 201709
  5. VINCRISTINE [Suspect]
     Active Substance: VINCRISTINE
     Dosage: THIRD CYCLES
     Route: 065
     Dates: start: 201709
  6. CYCLOPHOSPHAMIDE. [Suspect]
     Active Substance: CYCLOPHOSPHAMIDE
     Indication: B-CELL LYMPHOMA
     Dosage: TWO CYCLES
     Route: 065
     Dates: start: 201706
  7. DOXORUBICIN [Suspect]
     Active Substance: DOXORUBICIN
     Indication: B-CELL LYMPHOMA
     Dosage: TWO CYCLES
     Route: 065
     Dates: start: 201706
  8. RITUXIMAB. [Suspect]
     Active Substance: RITUXIMAB
     Indication: B-CELL LYMPHOMA
     Dosage: TWO CYCLES
     Route: 065
     Dates: start: 201706

REACTIONS (6)
  - Pancytopenia [Recovered/Resolved]
  - Acute kidney injury [Recovered/Resolved]
  - Hypernatraemia [Unknown]
  - Gastrointestinal inflammation [Recovered/Resolved]
  - Febrile neutropenia [Recovered/Resolved]
  - Osmotic demyelination syndrome [Recovering/Resolving]

NARRATIVE: CASE EVENT DATE: 201709
